FAERS Safety Report 9099439 (Version 1)
Quarter: 2013Q1

REPORT INFORMATION
  Report Type: Spontaneous
  Country: FR (occurrence: FR)
  Receive Date: 20130214
  Receipt Date: 20130214
  Transmission Date: 20140127
  Serious: Yes (Other)
  Sender: FDA-Public Use
  Company Number: FR-ROCHE-1190484

PATIENT
  Age: 16 Year
  Sex: Female

DRUGS (9)
  1. ROACCUTANE [Suspect]
     Indication: ACNE
     Route: 048
     Dates: start: 199506, end: 199512
  2. DIANE-35 [Concomitant]
     Route: 048
     Dates: start: 199503, end: 2002
  3. TOLEXINE [Concomitant]
     Route: 048
  4. ERYTHROGEL [Concomitant]
     Route: 061
     Dates: start: 1992, end: 1995
  5. CUTACNYL [Concomitant]
     Route: 061
     Dates: start: 1992, end: 1995
  6. EFFEDERM [Concomitant]
     Route: 061
     Dates: start: 1992, end: 1995
  7. LOCACID [Concomitant]
     Route: 061
     Dates: start: 1992, end: 1995
  8. CALCIUM [Concomitant]
     Indication: ANXIETY
     Route: 048
     Dates: start: 199506
  9. CALCIUM [Concomitant]
     Indication: TETANY

REACTIONS (8)
  - Lip dry [Unknown]
  - Dry skin [Unknown]
  - Stress [Not Recovered/Not Resolved]
  - Anxiety [Not Recovered/Not Resolved]
  - Obsessive-compulsive disorder [Not Recovered/Not Resolved]
  - Suicide attempt [Unknown]
  - Myalgia [Not Recovered/Not Resolved]
  - Personality change [Not Recovered/Not Resolved]
